FAERS Safety Report 7729644-6 (Version None)
Quarter: 2011Q3

REPORT INFORMATION
  Report Type: 
  Country: None (occurrence: None)
  Receive Date: 20110817
  Receipt Date: 20110505
  Transmission Date: 20111222
  Serious: Yes (Other)
  Sender: FDA-Public Use
  Company Number: 201110524

PATIENT
  Age: 27 Year
  Sex: Female

DRUGS (1)
  1. LIORESAL [Suspect]
     Indication: MUSCLE SPASTICITY
     Dosage: 350 MCG, DAILY, INTRATHECAL
     Route: 037

REACTIONS (3)
  - ENDOTRACHEAL INTUBATION [None]
  - HYPOTENSION [None]
  - TACHYCARDIA [None]
